FAERS Safety Report 18461029 (Version 1)
Quarter: 2020Q4

REPORT INFORMATION
  Report Type: Spontaneous
  Country: US (occurrence: US)
  Receive Date: 20201104
  Receipt Date: 20201104
  Transmission Date: 20210114
  Serious: Yes (Life-Threatening, Hospitalization)
  Sender: FDA-Public Use
  Company Number: US-GLAND PHARMA LIMITED-2020US006674

PATIENT
  Age: 44 Year
  Sex: Female

DRUGS (3)
  1. ROCURONIUM BROMIDE. [Suspect]
     Active Substance: ROCURONIUM BROMIDE
     Indication: INDUCTION OF ANAESTHESIA
     Dosage: UNK
     Route: 065
  2. PROPOFOL. [Suspect]
     Active Substance: PROPOFOL
     Indication: INDUCTION OF ANAESTHESIA
     Dosage: UNK
     Route: 065
  3. MIDAZOLAM. [Suspect]
     Active Substance: MIDAZOLAM
     Indication: INDUCTION OF ANAESTHESIA
     Dosage: UNK
     Route: 065

REACTIONS (4)
  - Stress cardiomyopathy [Recovering/Resolving]
  - Cardiac arrest [Recovered/Resolved]
  - Coronary artery embolism [Recovered/Resolved]
  - Pulmonary embolism [Recovered/Resolved]
